FAERS Safety Report 9921882 (Version 4)
Quarter: 2014Q2

REPORT INFORMATION
  Report Type: Spontaneous
  Country: JP (occurrence: JP)
  Receive Date: 20140225
  Receipt Date: 20140508
  Transmission Date: 20141212
  Serious: Yes (Hospitalization)
  Sender: FDA-Public Use
  Company Number: JP-009507513-1402JPN011606

PATIENT
  Age: 28 Year
  Sex: Male

DRUGS (5)
  1. REFLEX [Suspect]
     Indication: DEPRESSION
     Dosage: 15 MG/DAY,EVENING, SOMETIMES TAKEN ON A P.R.N. BASIS
     Route: 048
     Dates: start: 20131127, end: 20140218
  2. REFLEX [Suspect]
     Indication: ADJUSTMENT DISORDER
  3. ZOLPIDEM TARTRATE [Concomitant]
     Indication: INSOMNIA
     Dosage: DAILY DOSE:10 MG, P.R.N.
     Route: 048
     Dates: start: 20131127, end: 20131206
  4. MOSAPRIDE CITRATE [Concomitant]
     Indication: NAUSEA
     Dosage: DAILY DOSE 15 MG (3 TABLETS)
     Route: 048
     Dates: start: 20131127, end: 20131220
  5. DULOXETINE HYDROCHLORIDE [Concomitant]
     Indication: DEPRESSION
     Dosage: TOTAL DAILY DOSE 20 MG
     Route: 048
     Dates: start: 20140110, end: 20140110

REACTIONS (1)
  - Hepatitis acute [Recovering/Resolving]
